FAERS Safety Report 6304169-3 (Version None)
Quarter: 2009Q3

REPORT INFORMATION
  Report Type: 
  Country: None (occurrence: None)
  Receive Date: 20090811
  Receipt Date: 20090803
  Transmission Date: 20100115
  Serious: Yes (Hospitalization)
  Sender: FDA-Public Use
  Company Number: US-BIOGENIDEC-2009BI016680

PATIENT
  Age: 61 Year
  Sex: Female

DRUGS (3)
  1. AVONEX [Suspect]
     Indication: MULTIPLE SCLEROSIS
     Route: 030
     Dates: start: 20050201, end: 20090401
  2. AVONEX [Suspect]
     Route: 030
  3. INSULIN [Concomitant]
     Indication: DIABETES MELLITUS

REACTIONS (3)
  - ASTHENIA [None]
  - DIABETIC ULCER [None]
  - EXOSTOSIS [None]
